FAERS Safety Report 24144320 (Version 2)
Quarter: 2025Q1

REPORT INFORMATION
  Report Type: Spontaneous
  Country: DE (occurrence: DE)
  Receive Date: 20240728
  Receipt Date: 20250130
  Transmission Date: 20250408
  Serious: Yes (Hospitalization)
  Sender: SANDOZ
  Company Number: DE-EMA-DD-20240715-7482677-084326

PATIENT
  Age: 63 Year
  Sex: Male
  Weight: 65 kg

DRUGS (32)
  1. ACETYLCYSTEINE [Suspect]
     Active Substance: ACETYLCYSTEINE
     Indication: Mucosal inflammation
     Route: 048
  2. AMOXICILLIN [Suspect]
     Active Substance: AMOXICILLIN
     Indication: Bronchitis
     Route: 048
     Dates: start: 19981107
  3. ACTRAPID [Suspect]
     Active Substance: INSULIN HUMAN
     Indication: Diabetes mellitus
     Route: 042
     Dates: start: 19981107, end: 19981107
  4. ASPIRIN DL-LYSINE [Suspect]
     Active Substance: ASPIRIN DL-LYSINE
     Indication: Angina pectoris
     Route: 042
     Dates: start: 19981107, end: 19981107
  5. MOLSIDOMINE [Suspect]
     Active Substance: MOLSIDOMINE
     Indication: Coronary artery disease
     Route: 048
  6. DIAZEPAM [Suspect]
     Active Substance: DIAZEPAM
     Indication: Restlessness
     Route: 048
     Dates: start: 19981107, end: 19981107
  7. URAPIDIL [Suspect]
     Active Substance: URAPIDIL
     Indication: Angina pectoris
     Route: 042
     Dates: start: 19981107, end: 19981107
  8. FUROSEMIDE [Suspect]
     Active Substance: FUROSEMIDE
     Route: 042
  9. FUROSEMIDE [Suspect]
     Active Substance: FUROSEMIDE
     Indication: Coronary artery insufficiency
     Route: 048
     Dates: start: 19981107
  10. HEPARIN [Suspect]
     Active Substance: HEPARIN SODIUM
     Route: 042
     Dates: start: 19981107, end: 19981109
  11. HEPARIN [Suspect]
     Active Substance: HEPARIN SODIUM
     Indication: Thrombosis
     Route: 058
     Dates: start: 19981107, end: 19981107
  12. ISOSORBIDE DINITRATE [Suspect]
     Active Substance: ISOSORBIDE DINITRATE
     Indication: Coronary artery disease
     Route: 048
  13. LASIX [Suspect]
     Active Substance: FUROSEMIDE
     Indication: Coronary artery insufficiency
     Route: 042
     Dates: start: 19981107, end: 19981107
  14. FLUVASTATIN SODIUM [Suspect]
     Active Substance: FLUVASTATIN SODIUM
     Indication: Hypercholesterolaemia
     Route: 048
     Dates: end: 19981106
  15. MCP [Suspect]
     Active Substance: METOCLOPRAMIDE HYDROCHLORIDE
     Route: 042
     Dates: start: 19981107, end: 19981107
  16. MCP [Suspect]
     Active Substance: METOCLOPRAMIDE HYDROCHLORIDE
     Indication: Illness
     Route: 048
     Dates: end: 19981106
  17. MORPHINE SULFATE [Suspect]
     Active Substance: MORPHINE SULFATE
     Indication: Pain
     Route: 042
     Dates: start: 19981107, end: 19981107
  18. NITROGLYCERIN [Suspect]
     Active Substance: NITROGLYCERIN
     Indication: Angina pectoris
     Route: 048
  19. NITROGLYCERIN [Suspect]
     Active Substance: NITROGLYCERIN
     Route: 048
     Dates: start: 19981107, end: 19981107
  20. NOVALGIN (METAMIZOLE SODIUM) [Suspect]
     Active Substance: METAMIZOLE SODIUM
     Indication: Pain
     Route: 048
     Dates: start: 19981107, end: 19981107
  21. FUROSEMIDE [Suspect]
     Active Substance: FUROSEMIDE
     Indication: Oedema
     Dosage: TAB 2
     Route: 048
     Dates: end: 19981106
  22. ACETYLCYSTEINE [Suspect]
     Active Substance: ACETYLCYSTEINE
     Indication: Cough
     Route: 048
     Dates: end: 19981109
  23. ACETAMINOPHEN [Suspect]
     Active Substance: ACETAMINOPHEN
     Indication: Pyrexia
     Route: 054
     Dates: end: 19981109
  24. PANTOZOL [Suspect]
     Active Substance: PANTOPRAZOLE SODIUM
     Indication: Gastric ulcer
     Route: 048
     Dates: start: 19981107
  25. NITROGLYCERIN [Suspect]
     Active Substance: NITROGLYCERIN
     Indication: Angina pectoris
     Route: 042
     Dates: start: 19981107, end: 19981108
  26. ALLOPURINOL [Suspect]
     Active Substance: ALLOPURINOL
     Indication: Hyperuricaemia
     Route: 048
     Dates: end: 19981106
  27. AQUAPHOR [Concomitant]
     Active Substance: PETROLATUM
     Indication: Hypertension
     Route: 048
     Dates: start: 19981108
  28. AQUAPHOR [Concomitant]
     Active Substance: PETROLATUM
     Route: 048
     Dates: end: 19981106
  29. INSULIN NOS [Concomitant]
     Active Substance: INSULIN NOS
     Indication: Diabetes mellitus
     Route: 058
  30. ISMN BASICS [Concomitant]
     Indication: Coronary artery disease
     Route: 048
     Dates: end: 19981106
  31. MOLSIDOMINE [Concomitant]
     Active Substance: MOLSIDOMINE
     Indication: Coronary artery disease
     Route: 048
     Dates: end: 19981106
  32. CARVEDILOL [Concomitant]
     Active Substance: CARVEDILOL
     Indication: Hypertension
     Route: 048

REACTIONS (12)
  - Skin disorder [Unknown]
  - Pyrexia [Unknown]
  - Blood urea increased [Unknown]
  - Blood creatinine increased [Unknown]
  - Leukocytosis [Unknown]
  - Ocular hyperaemia [Unknown]
  - Oral mucosal eruption [Unknown]
  - Stevens-Johnson syndrome [Recovered/Resolved]
  - Rash [Unknown]
  - Erythema multiforme [Recovered/Resolved]
  - Pruritus [Unknown]
  - Pruritus [Unknown]

NARRATIVE: CASE EVENT DATE: 19981108
